FAERS Safety Report 7212614-4 (Version None)
Quarter: 2010Q4

REPORT INFORMATION
  Report Type: 
  Country: None (occurrence: None)
  Receive Date: 20101229
  Receipt Date: 20101213
  Transmission Date: 20110411
  Serious: Yes (Death)
  Sender: FDA-Public Use
  Company Number: 08-185

PATIENT
  Age: 53 Year
  Sex: Female

DRUGS (1)
  1. FAZACLO ODT [Suspect]
     Dosage: 600 MG PO DAILY
     Route: 048
     Dates: start: 20051101, end: 20070601

REACTIONS (1)
  - MYOCARDIAL ISCHAEMIA [None]
